FAERS Safety Report 17660784 (Version 1)
Quarter: 2020Q2

REPORT INFORMATION
  Report Type: Spontaneous
  Country: DE (occurrence: DE)
  Receive Date: 20200413
  Receipt Date: 20200413
  Transmission Date: 20200713
  Serious: Yes (Other)
  Sender: FDA-Public Use
  Company Number: DE-EMCURE PHARMACEUTICALS LTD-2020-EPL-000426

PATIENT
  Age: 67 Year
  Sex: Male

DRUGS (6)
  1. IRINOTECAN HYDROCHLORIDE. [Suspect]
     Active Substance: IRINOTECAN HYDROCHLORIDE
     Indication: DUCTAL ADENOCARCINOMA OF PANCREAS
     Dosage: 150 MILLIGRAM/SQ. METER, CYCLE FOLFIRINOX
  2. CALCIUM FOLINATE [Suspect]
     Active Substance: LEUCOVORIN CALCIUM
     Indication: DUCTAL ADENOCARCINOMA OF PANCREAS
     Dosage: 400 MILLIGRAM/SQ. METER, CYCLE
  3. FLUOROURACIL. [Suspect]
     Active Substance: FLUOROURACIL
     Indication: DUCTAL ADENOCARCINOMA OF PANCREAS
     Dosage: 2400 MILLIGRAM/SQ. METER
  4. PACLITAXEL. [Suspect]
     Active Substance: PACLITAXEL
     Indication: DUCTAL ADENOCARCINOMA OF PANCREAS
     Dosage: 125 MILLIGRAM/SQ. METER, NAB- PACLITAXEL
  5. OXALIPLATIN. [Suspect]
     Active Substance: OXALIPLATIN
     Indication: DUCTAL ADENOCARCINOMA OF PANCREAS
     Dosage: 85 MILLIGRAM/SQ. METER, CYCLE
  6. GEMCITABINE. [Suspect]
     Active Substance: GEMCITABINE
     Indication: DUCTAL ADENOCARCINOMA OF PANCREAS
     Dosage: 1000 MILLIGRAM/SQ. METER

REACTIONS (2)
  - Cardiotoxicity [Unknown]
  - Cardiomyopathy [Unknown]
